FAERS Safety Report 4685046-0 (Version None)
Quarter: 2005Q2

REPORT INFORMATION
  Report Type: 
  Country: None (occurrence: None)
  Receive Date: 20050531
  Receipt Date: 20050209
  Transmission Date: 20051028
  Serious: No
  Sender: FDA-Public Use
  Company Number: WAES 0502USA01001

PATIENT
  Age: 66 Year
  Sex: Female
  Weight: 69.8539 kg

DRUGS (16)
  1. ZETIA [Suspect]
     Indication: HYPERLIPIDAEMIA
     Dosage: 10 MG/DAILY/PO
     Route: 048
     Dates: start: 20050129, end: 20050208
  2. ALLEGRA [Concomitant]
  3. ECOTRIN [Concomitant]
  4. FOLTX [Concomitant]
  5. LOTENSIN [Concomitant]
  6. PLAVIX [Concomitant]
  7. PRAVACHOL [Concomitant]
  8. PREMARIN [Concomitant]
  9. MAGNESIUM SULFATE [Concomitant]
  10. ASCORBIC ACID [Concomitant]
  11. ATENOLOL [Concomitant]
  12. CALCIUM GLUCONATE [Concomitant]
  13. FUROSEMIDE [Concomitant]
  14. GLUCOSAMINE [Concomitant]
  15. PARAFFIN [Concomitant]
  16. VITAMIN B COMPLEX CAP [Concomitant]

REACTIONS (4)
  - ANGIONEUROTIC OEDEMA [None]
  - DYSPHAGIA [None]
  - PHARYNGOLARYNGEAL PAIN [None]
  - SWELLING FACE [None]
